FAERS Safety Report 7096073-0 (Version None)
Quarter: 2010Q4

REPORT INFORMATION
  Report Type: 
  Country: None (occurrence: None)
  Receive Date: 20101111
  Receipt Date: 20100728
  Transmission Date: 20110411
  Serious: Yes (Death, Other)
  Sender: FDA-Public Use
  Company Number: JP-ROCHE-685841

PATIENT
  Sex: Male
  Weight: 67 kg

DRUGS (28)
  1. AVASTIN [Suspect]
     Indication: RECTAL CANCER METASTATIC
     Route: 041
     Dates: start: 20080507, end: 20091216
  2. ELPLAT [Suspect]
     Indication: RECTAL CANCER METASTATIC
     Dosage: ROUTE: INTRAVENOUS DRIP
     Route: 041
     Dates: start: 20081029, end: 20100113
  3. FLUOROURACIL [Suspect]
     Indication: RECTAL CANCER METASTATIC
     Dosage: ROUTE: INTRAVENOUS BOLUS,  DOSE FORM: INJECTION
     Route: 040
     Dates: start: 20080507, end: 20081002
  4. FLUOROURACIL [Suspect]
     Dosage: INTRAVENOUS BOLUS
     Route: 040
     Dates: start: 20081029, end: 20100114
  5. LEVOFOLINATE [Suspect]
     Indication: RECTAL CANCER METASTATIC
     Dosage: DOSE FORM: INJECTION
     Route: 041
     Dates: start: 20080507, end: 20081002
  6. LEVOFOLINATE [Suspect]
     Route: 041
     Dates: start: 20081029, end: 20100114
  7. IRINOTECAN HYDROCHLORIDE [Concomitant]
     Route: 041
     Dates: start: 20080507, end: 20081001
  8. BUFFERIN [Concomitant]
     Route: 048
  9. GRAN [Concomitant]
  10. RENIVACE [Concomitant]
     Route: 048
  11. WARFARIN [Concomitant]
     Route: 048
  12. VASOLAN [Concomitant]
     Route: 048
  13. VOLTAREN [Concomitant]
     Route: 048
  14. MUCOSTA [Concomitant]
     Route: 048
  15. HOKUNALIN [Concomitant]
     Dosage: DOSAGE FORM: TAPE
     Route: 062
  16. HACHIAZULE [Concomitant]
     Dosage: DOSE FORM: INCLUDE ASPECT, ROUTE: OROPHARINGEAL
     Route: 050
  17. PASTARON [Concomitant]
     Route: 003
  18. KENALOG [Concomitant]
     Dosage: DOSE FORM: OINTMENT AND CREAM
     Route: 003
  19. KLARICID [Concomitant]
     Route: 048
  20. CALCICOL [Concomitant]
  21. MAGNESIUM SULFATE [Concomitant]
  22. KYTRIL [Concomitant]
  23. DECADRON [Concomitant]
  24. HIRUDOID [Concomitant]
     Dosage: OINTMENT AND CREAM
     Route: 003
  25. HUSCODE [Concomitant]
     Route: 048
  26. OXYCONTIN [Concomitant]
     Route: 048
  27. THEO-DUR [Concomitant]
     Route: 048
  28. NOVAMIN [Concomitant]
     Route: 048

REACTIONS (25)
  - ACIDOSIS [None]
  - ADHESION [None]
  - CARDIOMEGALY [None]
  - DIFFUSE ALVEOLAR DAMAGE [None]
  - DISEASE PROGRESSION [None]
  - HYDRONEPHROSIS [None]
  - HYPOXIA [None]
  - ILEAL PERFORATION [None]
  - INTERSTITIAL LUNG DISEASE [None]
  - INTESTINAL OBSTRUCTION [None]
  - LYMPHANGIOSIS CARCINOMATOSA [None]
  - PERITONEAL FIBROSIS [None]
  - PERITONITIS [None]
  - PLEURAL EFFUSION [None]
  - PNEUMONIA [None]
  - POSTOPERATIVE HERNIA [None]
  - PULMONARY FIBROSIS [None]
  - PULMONARY HAEMORRHAGE [None]
  - RENAL CYST [None]
  - RENAL FAILURE ACUTE [None]
  - RESPIRATORY FAILURE [None]
  - SEPSIS [None]
  - SHOCK [None]
  - VENTRICULAR FIBRILLATION [None]
  - VOLVULUS OF SMALL BOWEL [None]
